FAERS Safety Report 16345059 (Version 1)
Quarter: 2019Q2

REPORT INFORMATION
  Report Type: Report from Study
  Country: BR (occurrence: BR)
  Receive Date: 20190523
  Receipt Date: 20190523
  Transmission Date: 20190711
  Serious: Yes (Hospitalization, Other)
  Sender: FDA-Public Use
  Company Number: BR-SA-2019SA134869

PATIENT
  Age: 71 Year
  Sex: Female
  Weight: 63 kg

DRUGS (11)
  1. INSULIN GLARGINE [Suspect]
     Active Substance: INSULIN GLARGINE
     Indication: DIABETES MELLITUS
     Dosage: 20 IU, QD
     Route: 058
     Dates: start: 2015
  2. ATENSINA [Concomitant]
     Active Substance: CLONIDINE
     Dosage: 0.1 MG, QD (AT NIGHT)
     Route: 048
     Dates: start: 2014
  3. ADDERA D3 [Concomitant]
     Active Substance: CHOLECALCIFEROL
     Indication: VITAMIN D
     Dosage: 50 GTT DROPS, QW
     Route: 048
     Dates: start: 2014
  4. AAS [Concomitant]
     Active Substance: ASPIRIN
     Indication: ANTICOAGULANT THERAPY
     Dosage: 100 MG, QD (AFTER LUNCH)
     Dates: start: 2014
  5. TRAYENTA [Concomitant]
     Active Substance: LINAGLIPTIN
     Indication: DIABETES MELLITUS
     Dosage: 1 DF, BID (AT MORNING AND NIGHT)
     Route: 048
     Dates: start: 2015
  6. CLOPIDOGREL [CLOPIDOGREL BESYLATE] [Concomitant]
     Indication: ANTICOAGULANT THERAPY
     Dosage: 75 MG, QD (AT MORNING)
     Route: 048
     Dates: start: 2014
  7. ALLOPURINOL [ALLOPURINOL SODIUM] [Concomitant]
     Dosage: 300 MG, QD (AT NIGHT)
     Dates: start: 201903
  8. JARDIANCE [Concomitant]
     Active Substance: EMPAGLIFLOZIN
     Dosage: 10 MG, QD (AT MORNING)
     Dates: start: 2015
  9. PURAN [Concomitant]
     Active Substance: LEVOTHYROXINE SODIUM
     Indication: THYROID DISORDER
     Dosage: 62.5 UG, QD (AT MORNING)
     Route: 048
     Dates: start: 1979
  10. DIDEROT [Concomitant]
     Indication: HYPERTENSION
     Dosage: 25 MG, QD
     Route: 048
     Dates: start: 1979
  11. CRESTOR [Concomitant]
     Active Substance: ROSUVASTATIN CALCIUM
     Indication: RENAL DISORDER
     Dosage: 20 MG, QD (AT MORNING)
     Route: 048
     Dates: start: 2017

REACTIONS (2)
  - Renal failure [Recovering/Resolving]
  - Dizziness [Recovering/Resolving]

NARRATIVE: CASE EVENT DATE: 201904
